FAERS Safety Report 19586227 (Version 1)
Quarter: 2021Q3

REPORT INFORMATION
  Report Type: Spontaneous
  Country: IT (occurrence: IT)
  Receive Date: 20210720
  Receipt Date: 20210720
  Transmission Date: 20211014
  Serious: Yes (Hospitalization, Other)
  Sender: FDA-Public Use
  Company Number: IT-SA-2021SA237211

PATIENT
  Sex: Male

DRUGS (3)
  1. MEPOLIZUMAB [Concomitant]
     Active Substance: MEPOLIZUMAB
  2. DUPIXENT [Suspect]
     Active Substance: DUPILUMAB
     Indication: ASTHMA
     Dosage: UNK
     Dates: start: 202101, end: 20210715
  3. DUPIXENT [Suspect]
     Active Substance: DUPILUMAB
     Indication: NASAL POLYPS

REACTIONS (3)
  - Hypersensitivity vasculitis [Unknown]
  - Pyrexia [Unknown]
  - Eosinophilia [Unknown]

NARRATIVE: CASE EVENT DATE: 2021
